FAERS Safety Report 9275336 (Version 1)
Quarter: 2013Q2

REPORT INFORMATION
  Report Type: Spontaneous
  Country: US (occurrence: None)
  Receive Date: 20130501
  Receipt Date: 20130501
  Transmission Date: 20140414
  Serious: Yes (Other)
  Sender: FDA-Public Use
  Company Number: None

PATIENT
  Age: 51 Year
  Sex: Female
  Weight: 61.24 kg

DRUGS (2)
  1. ENBREL SURECLICK [Suspect]
     Indication: PSORIASIS
     Route: 058
     Dates: start: 20121024
  2. ENBREL SURECLICK [Suspect]
     Indication: PSORIATIC ARTHROPATHY
     Route: 058
     Dates: start: 20121024

REACTIONS (2)
  - Eye irritation [None]
  - Eye inflammation [None]
